FAERS Safety Report 5660382-X (Version None)
Quarter: 2008Q1

REPORT INFORMATION
  Report Type: 
  Country: None (occurrence: None)
  Receive Date: 20080311
  Receipt Date: 20071011
  Transmission Date: 20080703
  Serious: No
  Sender: FDA-Public Use
  Company Number: US-BAYER-200713328BCC

PATIENT
  Age: 70 Year
  Sex: Female
  Weight: 50 kg

DRUGS (3)
  1. ALEVE [Suspect]
     Indication: HEADACHE
     Dosage: UNIT DOSE: 220 MG
     Route: 048
     Dates: start: 20071010
  2. ELAVIL [Concomitant]
  3. CLONAZEPAM [Concomitant]

REACTIONS (2)
  - HEADACHE [None]
  - NECK PAIN [None]
